FAERS Safety Report 6596137-1 (Version None)
Quarter: 2010Q1

REPORT INFORMATION
  Report Type: 
  Country: None (occurrence: None)
  Receive Date: 20100223
  Receipt Date: 20100219
  Transmission Date: 20100710
  Serious: No
  Sender: FDA-Public Use
  Company Number: US-ELI_LILLY_AND_COMPANY-US201002000099

PATIENT
  Sex: Male
  Weight: 76.9 kg

DRUGS (14)
  1. GEMCITABINE HCL [Suspect]
     Indication: NON-SMALL CELL LUNG CANCER METASTATIC
     Dosage: UNK, DAYS 1 AND 8, EVERY 21 DAYS
     Dates: start: 20100113
  2. CARBOPLATIN [Concomitant]
     Indication: NON-SMALL CELL LUNG CANCER METASTATIC
     Dosage: UNK, UNK
     Dates: start: 20090101
  3. TAXOTERE [Concomitant]
     Indication: NON-SMALL CELL LUNG CANCER
     Dates: start: 20091201, end: 20091201
  4. LIPITOR [Concomitant]
     Indication: HYPERCHOLESTEROLAEMIA
     Dosage: 20 MG, EACH EVENING
     Route: 048
     Dates: start: 20000101
  5. ZETIA [Concomitant]
     Indication: HYPERCHOLESTEROLAEMIA
     Dosage: 10 MG, DAILY (1/D)
     Route: 048
     Dates: start: 20040101
  6. CIMETIDINE [Concomitant]
     Indication: GASTROOESOPHAGEAL REFLUX DISEASE
     Dosage: 400 MG, EACH EVENING
     Route: 048
     Dates: start: 19960101
  7. FOSINOPRIL SODIUM [Concomitant]
     Indication: HYPERTENSION
     Dosage: UNK, UNK
     Dates: start: 20000101
  8. ZOFRAN [Concomitant]
     Indication: PROPHYLAXIS OF NAUSEA AND VOMITING
     Dates: start: 20090702
  9. COMPAZINE [Concomitant]
     Indication: NAUSEA
     Dates: start: 20090702
  10. VICODIN [Concomitant]
     Indication: PAIN
     Dates: start: 20091028
  11. DEXAMETHASONE [Concomitant]
     Indication: PROPHYLAXIS
     Dates: start: 20090702
  12. FOLIC ACID [Concomitant]
     Indication: SUPPLEMENTATION THERAPY
     Dates: start: 20090625, end: 20091118
  13. FOLIC ACID [Concomitant]
     Dosage: 1500 MG, DAILY (1/D)
     Dates: start: 20091201
  14. VITAMIN B-12 [Concomitant]
     Indication: SUPPLEMENTATION THERAPY
     Dates: start: 20090625, end: 20091118

REACTIONS (1)
  - NO ADVERSE EVENT [None]
